FAERS Safety Report 10965339 (Version 8)
Quarter: 2019Q4

REPORT INFORMATION
  Report Type: Spontaneous
  Country: US (occurrence: US)
  Receive Date: 20150330
  Receipt Date: 20191121
  Transmission Date: 20200122
  Serious: No
  Sender: FDA-Public Use
  Company Number: US-PFIZER INC-2015108966

PATIENT
  Age: 54 Year
  Sex: Male

DRUGS (32)
  1. PRINIVIL [Concomitant]
     Active Substance: LISINOPRIL
     Dosage: 20 MG, DAILY
     Route: 048
     Dates: start: 20150415
  2. LYRICA [Suspect]
     Active Substance: PREGABALIN
     Indication: FIBROMYALGIA
     Dosage: 200 MG, DAILY
     Route: 048
  3. GLUCOPHAGE XR [Concomitant]
     Active Substance: METFORMIN HYDROCHLORIDE
     Dosage: 500 MG, 2X/DAY
     Route: 048
     Dates: start: 20160926
  4. VITAMIN D2 [Concomitant]
     Active Substance: ERGOCALCIFEROL
     Dosage: 50000 IU, WEEKLY (ONCE A WEEK FOR 6 WEEKS, THEN TAKE ONE CAPSULE ONCE A MONTH)
     Route: 048
     Dates: start: 20150415
  5. PRAVACHOL [Concomitant]
     Active Substance: PRAVASTATIN SODIUM
     Dosage: 40 MG, 1X/DAY (1 TABLET BY MOUTH EVERY EVENING)
     Route: 048
     Dates: start: 20151015
  6. ZESTRIL [Concomitant]
     Active Substance: LISINOPRIL
     Dosage: 40 MG, DAILY
     Route: 048
     Dates: start: 20160622
  7. LEVOTHROID [Concomitant]
     Active Substance: LEVOTHYROXINE SODIUM
     Dosage: 150 UG, DAILY
     Route: 048
     Dates: start: 20151102
  8. LYRICA [Suspect]
     Active Substance: PREGABALIN
     Dosage: 100 MG, THRICE DAILY
     Route: 048
     Dates: start: 20161128
  9. FLEXERIL [Concomitant]
     Active Substance: CYCLOBENZAPRINE HYDROCHLORIDE
     Indication: MYALGIA
     Dosage: 10 MG, AS NEEDED (TAKE 1 OR 2 TABLETS BY MOUTH AT BEDTIME)
     Route: 048
     Dates: start: 20150415
  10. ATIVAN [Concomitant]
     Active Substance: LORAZEPAM
     Dosage: 3 MG, DAILY (1 MG TABLET IN THE MORNING AND 2 TABLETS AT NIGHT)
     Route: 048
  11. GLUCOPHAGE XR [Concomitant]
     Active Substance: METFORMIN HYDROCHLORIDE
     Dosage: 500 MG, 2X/DAY(1 TABLET BY MOUTH 2 (TWO) TIMES DAILY WITH MEALS)
     Route: 048
     Dates: start: 20160324, end: 2016
  12. MAG-OX [Concomitant]
     Active Substance: MAGNESIUM OXIDE
     Dosage: 800 MG, 1X/DAY (BY MOUTH NIGHTLY)
     Route: 048
  13. GLUCOPHAGE XR [Concomitant]
     Active Substance: METFORMIN HYDROCHLORIDE
     Dosage: 500 MG, 2X/DAY(1 TABLET BY MOUTH 2 (TWO) TIMES DAILY WITH MEALS)
     Route: 048
     Dates: start: 20150306
  14. VITAMIN D2 [Concomitant]
     Active Substance: ERGOCALCIFEROL
     Dosage: 5000 IU, MONTHLY
     Route: 048
  15. VITAMIN D2 [Concomitant]
     Active Substance: ERGOCALCIFEROL
     Dosage: 5000 IU, MONTHLY
     Route: 048
  16. VITAMIN B12 [Concomitant]
     Active Substance: CYANOCOBALAMIN
     Dosage: 2500 ?G, DAILY
     Route: 060
  17. FEVERFEW [Concomitant]
     Active Substance: FEVERFEW
     Dosage: 500 MG, DAILY
     Route: 048
  18. SYNTHROID [Concomitant]
     Active Substance: LEVOTHYROXINE SODIUM
     Dosage: 150 UG, DAILY
     Route: 048
     Dates: start: 20151102
  19. SYNTHROID [Concomitant]
     Active Substance: LEVOTHYROXINE SODIUM
     Dosage: 150 UG, DAILY
     Route: 048
     Dates: start: 20161125
  20. PRINIVIL [Concomitant]
     Active Substance: LISINOPRIL
     Dosage: 40 MG, DAILY
     Route: 048
     Dates: start: 20160418, end: 2016
  21. PRINIVIL [Concomitant]
     Active Substance: LISINOPRIL
     Dosage: 40 MG, DAILY
     Route: 048
     Dates: start: 20160622
  22. LYRICA [Suspect]
     Active Substance: PREGABALIN
     Indication: INSOMNIA
     Dosage: 100 MG, THREE TIMES A DAY
     Route: 048
     Dates: start: 20150908
  23. FLEXERIL [Concomitant]
     Active Substance: CYCLOBENZAPRINE HYDROCHLORIDE
     Dosage: 10 MG, AS NEEDED (TAKE 1 OR 2 TABLETS BY MOUTH IF NEEDED)
     Route: 048
     Dates: start: 20160418, end: 2016
  24. FLEXERIL [Concomitant]
     Active Substance: CYCLOBENZAPRINE HYDROCHLORIDE
     Dosage: UNK, AS NEEDED (1 OR 2; IF NEEDED)
     Route: 048
     Dates: start: 20160622
  25. PRAVACHOL [Concomitant]
     Active Substance: PRAVASTATIN SODIUM
     Dosage: 40 MG, 1X/DAY (1 TABLET BY MOUTH EVERY EVENING)
     Route: 048
     Dates: start: 20150716, end: 2015
  26. WELLBUTRIN [Concomitant]
     Active Substance: BUPROPION HYDROCHLORIDE
     Dosage: 100 MG, 2X/DAY
     Route: 048
     Dates: start: 20150826
  27. CLEOCIN [Concomitant]
     Active Substance: CLINDAMYCIN PHOSPHATE
     Dosage: 300 MG, 3X/DAY
     Route: 048
  28. ZESTRIL [Concomitant]
     Active Substance: LISINOPRIL
     Dosage: 1 DF, DAILY
     Route: 048
     Dates: start: 20160418, end: 2016
  29. LYRICA [Suspect]
     Active Substance: PREGABALIN
     Indication: BACK DISORDER
     Dosage: 100 MG, TWICE DAILY
     Route: 048
     Dates: start: 20160415, end: 2016
  30. SYNTHROID [Concomitant]
     Active Substance: LEVOTHYROXINE SODIUM
     Dosage: 125 ?G, DAILY
     Route: 048
     Dates: start: 20150727, end: 2015
  31. VITAMIN D2 [Concomitant]
     Active Substance: ERGOCALCIFEROL
     Dosage: 50000 IU, WEEKLY (ONCE A WEEK FOR 6 WEEKS, THEN TAKE ONE CAPSULE ONCE A MONTH)
     Route: 048
     Dates: start: 20160324
  32. LEVOTHROID [Concomitant]
     Active Substance: LEVOTHYROXINE SODIUM
     Dosage: 150 UG, DAILY
     Route: 048
     Dates: start: 20161125

REACTIONS (1)
  - Pain [Unknown]
